FAERS Safety Report 6060756-1 (Version None)
Quarter: 2009Q1

REPORT INFORMATION
  Report Type: 
  Country: None (occurrence: None)
  Receive Date: 20090202
  Receipt Date: 20090122
  Transmission Date: 20090719
  Serious: Yes (Hospitalization)
  Sender: FDA-Public Use
  Company Number: PHHO2008JP08670

PATIENT
  Sex: Female
  Weight: 48 kg

DRUGS (23)
  1. ICL670A ICL+DISTAB [Suspect]
     Indication: IRON OVERLOAD
     Dosage: 1000 MG, QD
     Route: 048
     Dates: start: 20080416
  2. ICL670A ICL+DISTAB [Suspect]
     Dosage: NO TREATMENT
     Dates: start: 20080502, end: 20080507
  3. ICL670A ICL+DISTAB [Suspect]
     Dosage: 1000 MG, QD
     Route: 048
     Dates: start: 20080508, end: 20080512
  4. ICL670A ICL+DISTAB [Suspect]
     Dosage: NO TREATMENT
     Dates: start: 20080513, end: 20080610
  5. ICL670A ICL+DISTAB [Suspect]
     Dosage: 1000 MG, QD
     Route: 048
     Dates: start: 20080611
  6. FLUVOXAMINE MALEATE [Concomitant]
     Indication: NEUROSIS
     Dosage: 75 MG, UNK
     Route: 048
  7. SEDIEL [Concomitant]
     Indication: NEUROSIS
     Dosage: 30 MG, UNK
     Route: 048
  8. LENDORMIN [Concomitant]
     Indication: NEUROSIS
     Dosage: 0.25 MG, UNK
     Route: 048
  9. ALFAROL [Concomitant]
     Indication: OSTEOPOROSIS
     Dosage: 25 UG, UNK
     Route: 048
  10. FOLIAMIN [Concomitant]
     Indication: PORPHYRIA NON-ACUTE
     Dosage: 10 MG, UNK
     Route: 048
  11. VITAMEDIN CAPSULE [Concomitant]
     Indication: SKIN ULCER
     Dosage: 50 MG, UNK
     Route: 048
  12. TAKEPRON [Concomitant]
     Indication: PROPHYLAXIS
     Dosage: 15 MG, UNK
     Route: 048
  13. HICEE [Concomitant]
     Indication: PORPHYRIA NON-ACUTE
     Dosage: 1.5 G, UNK
     Route: 048
     Dates: start: 20080703
  14. MAGLAX [Concomitant]
     Indication: CONSTIPATION PROPHYLAXIS
     Dosage: 500 MG, UNK
     Route: 048
     Dates: start: 20080703
  15. SOLETON [Concomitant]
     Indication: SKIN ULCER
     Dosage: 240 MG, UNK
     Route: 048
     Dates: start: 20080501
  16. RIVOTRIL [Concomitant]
     Indication: SKIN ULCER
     Dosage: 0.5 MG, UNK
     Route: 048
  17. MYSLEE [Concomitant]
     Indication: NEUROSIS
     Dosage: 5 MG, UNK
     Route: 048
  18. DEPAS [Concomitant]
     Indication: NEUROSIS
     Dosage: 0.5 MG, UNK
     Route: 048
  19. HIRUDOID [Concomitant]
     Indication: SKIN ULCER
     Dosage: UNK
  20. PROMAC [Concomitant]
     Indication: SKIN ULCER
     Dosage: 150 MG, UNK
     Route: 048
  21. AZUNOL [Concomitant]
     Indication: SKIN ULCER
     Dosage: UNK
     Route: 061
  22. LOXONIN [Concomitant]
  23. MOHRUS [Concomitant]

REACTIONS (12)
  - CONDITION AGGRAVATED [None]
  - COUGH [None]
  - FIBRIN D DIMER INCREASED [None]
  - FIBRIN DEGRADATION PRODUCTS INCREASED [None]
  - MUSCULOSKELETAL STIFFNESS [None]
  - NASOPHARYNGITIS [None]
  - NEUROSIS [None]
  - PAIN [None]
  - PERTUSSIS [None]
  - RETINAL HAEMORRHAGE [None]
  - SKIN ULCER [None]
  - VISUAL FIELD DEFECT [None]
